FAERS Safety Report 19397192 (Version 1)
Quarter: 2021Q2

REPORT INFORMATION
  Report Type: Spontaneous
  Country: CN (occurrence: CN)
  Receive Date: 20210609
  Receipt Date: 20210609
  Transmission Date: 20210717
  Serious: Yes (Other)
  Sender: FDA-Public Use
  Company Number: CN-ELI_LILLY_AND_COMPANY-CN202106000102

PATIENT

DRUGS (1)
  1. TRULICITY [Suspect]
     Active Substance: DULAGLUTIDE
     Indication: PRODUCT USED FOR UNKNOWN INDICATION
     Dosage: UNK, UNKNOWN
     Route: 058
     Dates: start: 20210327

REACTIONS (6)
  - Feeding disorder [Unknown]
  - Diarrhoea [Unknown]
  - Abdominal distension [Unknown]
  - Nausea [Unknown]
  - Gastric cancer [Unknown]
  - Dyschezia [Unknown]

NARRATIVE: CASE EVENT DATE: 20210328
